FAERS Safety Report 14152932 (Version 5)
Quarter: 2017Q4

REPORT INFORMATION
  Report Type: Spontaneous
  Country: JP (occurrence: JP)
  Receive Date: 20171102
  Receipt Date: 20171227
  Transmission Date: 20180321
  Serious: Yes (Hospitalization, Other)
  Sender: FDA-Public Use
  Company Number: PHJP2017JP032101

PATIENT
  Sex: Male

DRUGS (2)
  1. NEORAL [Suspect]
     Active Substance: CYCLOSPORINE
     Indication: TOXIC SKIN ERUPTION
     Dosage: 150 MG, UNK
     Route: 048
  2. PREDNISOLONE. [Concomitant]
     Active Substance: PREDNISOLONE
     Indication: TOXIC SKIN ERUPTION
     Dosage: UNK
     Route: 065

REACTIONS (11)
  - Hot flush [Unknown]
  - Oedema peripheral [Unknown]
  - Hypertension [Unknown]
  - Respiratory disorder [Unknown]
  - Product use in unapproved indication [Unknown]
  - Organising pneumonia [Recovering/Resolving]
  - Bronchial wall thickening [Unknown]
  - Pyrexia [Unknown]
  - Renal impairment [Unknown]
  - Hepatic function abnormal [Unknown]
  - Inflammation [Unknown]

NARRATIVE: CASE EVENT DATE: 20130902
